FAERS Safety Report 4677781-5 (Version None)
Quarter: 2005Q2

REPORT INFORMATION
  Report Type: 
  Country: None (occurrence: None)
  Receive Date: 20050527
  Receipt Date: 20050517
  Transmission Date: 20051028
  Serious: Yes (Hospitalization, Disabling)
  Sender: FDA-Public Use
  Company Number: 200511042BCC

PATIENT
  Age: 75 Year
  Sex: Female

DRUGS (4)
  1. ALEVE [Suspect]
     Indication: EUPHORIC MOOD
     Dosage: 220 MG, ONCE, ORAL
     Route: 048
     Dates: start: 20050109
  2. REGIMEN BAYER (ACETYLSALICYLIC ACID) [Suspect]
     Dosage: ORAL
     Route: 048
  3. NORVASC [Concomitant]
  4. ZETIA [Concomitant]

REACTIONS (2)
  - CEREBROVASCULAR ACCIDENT [None]
  - EYE DISORDER [None]
